FAERS Safety Report 7511155-4 (Version None)
Quarter: 2011Q2

REPORT INFORMATION
  Report Type: 
  Country: None (occurrence: None)
  Receive Date: 20110531
  Receipt Date: 20090822
  Transmission Date: 20111010
  Serious: Yes (Other)
  Sender: FDA-Public Use
  Company Number: US-BAYER-200930647NA

PATIENT
  Age: 68 Year
  Sex: Female
  Weight: 63 kg

DRUGS (26)
  1. TRASYLOL [Suspect]
     Indication: TRICUSPID VALVE REPAIR
  2. LOVENOX [Concomitant]
     Dosage: UNK
     Route: 058
     Dates: start: 20060305
  3. TRASYLOL [Suspect]
     Indication: MITRAL VALVE REPAIR
     Dosage: 280 MG, UNK
     Route: 042
     Dates: start: 20060623
  4. COUMADIN [Concomitant]
     Dosage: 5 MG, QD
     Route: 048
     Dates: start: 20060307
  5. HEXTEND [Concomitant]
     Dosage: 500 ML, UNK
     Dates: start: 20060623
  6. MAGNESIUM SULFATE [Concomitant]
     Dosage: 1 G, UNK
     Dates: start: 20060623
  7. LASIX [Concomitant]
     Dosage: UNK
     Route: 042
     Dates: start: 20060305
  8. PLAVIX [Concomitant]
     Dosage: 75 MG, UNK
     Route: 048
     Dates: start: 20060305
  9. PROCARDIA [Concomitant]
     Dosage: 30 MG, QD
     Dates: start: 20060307
  10. MANNITOL [Concomitant]
     Dosage: 12.5 G, UNK
     Dates: start: 20060623
  11. LIDOCAINE [Concomitant]
     Dosage: 200 MG, UNK
     Dates: start: 20060623
  12. SODIUM BICARBONATE [Concomitant]
     Dosage: UNK
     Dates: start: 20060623
  13. NORVASC [Concomitant]
     Indication: HYPERTENSION
     Dosage: UNK
     Route: 048
     Dates: start: 19900101
  14. DIGOXIN [Concomitant]
     Dosage: 0.125 MG, QD
     Dates: start: 20060307
  15. ALBUMIN (HUMAN) [Concomitant]
     Dosage: UNK
     Dates: start: 20060623
  16. PRIMACOR [Concomitant]
     Dosage: 3 ML, UNK
     Dates: start: 20060623
  17. HEPARIN [Concomitant]
     Dosage: UNK
     Dates: start: 20060623
  18. RED BLOOD CELLS [Concomitant]
     Dosage: 1 U, UNK
     Route: 042
     Dates: start: 20060623
  19. PLATELETS [Concomitant]
     Dosage: UNK
     Route: 042
     Dates: start: 20060623
  20. TRASYLOL [Suspect]
     Indication: COX-MAZE PROCEDURE
  21. ALTACE [Concomitant]
     Dosage: 5 MG, QD
     Route: 048
     Dates: start: 20060307
  22. TOPROL-XL [Concomitant]
     Dosage: 50 MG, BID
     Dates: start: 20060307
  23. CALCIUM CHLORIDE [Concomitant]
     Dosage: 1 G, UNK
  24. FRESH FROZEN PLASMA [Concomitant]
     Dosage: UNK
     Route: 042
     Dates: start: 20060623
  25. LABETALOL [Concomitant]
     Dosage: UNK
     Route: 042
     Dates: start: 20060305
  26. NITROGLYCERIN [Concomitant]
     Dosage: UNK
     Route: 061
     Dates: start: 20060305

REACTIONS (5)
  - INJURY [None]
  - RENAL FAILURE ACUTE [None]
  - UNEVALUABLE EVENT [None]
  - RENAL FAILURE [None]
  - PAIN [None]
